FAERS Safety Report 6993221-5 (Version None)
Quarter: 2010Q3

REPORT INFORMATION
  Report Type: 
  Country: None (occurrence: None)
  Receive Date: 20100917
  Receipt Date: 20090924
  Transmission Date: 20110219
  Serious: No
  Sender: FDA-Public Use
  Company Number: US-ASTRAZENECA-2009SE15120

PATIENT
  Sex: Female
  Weight: 89.4 kg

DRUGS (5)
  1. SEROQUEL [Suspect]
     Indication: BIPOLAR DISORDER
     Route: 048
     Dates: start: 20080101, end: 20090923
  2. LITHIUM CARBONATE [Concomitant]
  3. METFORMIN [Concomitant]
  4. ALBUTEROL [Concomitant]
  5. SENNA [Concomitant]

REACTIONS (4)
  - DRUG DOSE OMISSION [None]
  - DRUG WITHDRAWAL SYNDROME [None]
  - HYPERHIDROSIS [None]
  - MALAISE [None]
